FAERS Safety Report 5699946-6 (Version None)
Quarter: 2008Q2

REPORT INFORMATION
  Report Type: 
  Country: None (occurrence: None)
  Receive Date: 20080410
  Receipt Date: 20080407
  Transmission Date: 20081010
  Serious: Yes (Hospitalization)
  Sender: FDA-Public Use
  Company Number: FR-MERCK-0712FRA00004

PATIENT
  Age: 75 Year
  Sex: Male

DRUGS (3)
  1. COZAAR [Suspect]
     Indication: HYPERTENSION
     Route: 048
     Dates: start: 20060101, end: 20071001
  2. PAROXETINE [Concomitant]
     Indication: DEPRESSION
     Route: 048
  3. ZOPICLONE [Concomitant]
     Indication: INSOMNIA
     Route: 048

REACTIONS (2)
  - HERNIA HIATUS REPAIR [None]
  - PANCREATITIS ACUTE [None]
